FAERS Safety Report 11438422 (Version 1)
Quarter: 2015Q3

REPORT INFORMATION
  Report Type: Spontaneous
  Country: TR (occurrence: TR)
  Receive Date: 20150901
  Receipt Date: 20150901
  Transmission Date: 20151125
  Serious: Yes (Other)
  Sender: FDA-Public Use
  Company Number: TR-ALKEM-001151

PATIENT
  Age: 42 Year
  Sex: Female

DRUGS (2)
  1. CEFUROXIME. [Suspect]
     Active Substance: CEFUROXIME
     Indication: PROPHYLAXIS
     Dosage: TOOK FOR 5 DAYS AFTER A LIPOSUCTION IN LOWER EXTREMITIES
  2. NAPROXEN. [Concomitant]
     Active Substance: NAPROXEN
     Dosage: FOR 5 DAYS AFTER A LIPOSUCTION IN THE LOWER EXTREMITIES

REACTIONS (1)
  - Thrombotic thrombocytopenic purpura [Recovered/Resolved]
